FAERS Safety Report 14016797 (Version 2)
Quarter: 2017Q4

REPORT INFORMATION
  Report Type: Spontaneous
  Country: DE (occurrence: DE)
  Receive Date: 20170927
  Receipt Date: 20171004
  Transmission Date: 20180321
  Serious: Yes (Death)
  Sender: FDA-Public Use
  Company Number: DE-ASTRAZENECA-2017SE81912

PATIENT
  Age: 56 Year
  Sex: Female

DRUGS (17)
  1. NALOXEGOL [Suspect]
     Active Substance: NALOXEGOL
     Indication: CONSTIPATION
     Route: 048
     Dates: start: 20170731, end: 20170816
  2. EFFENTORA [Suspect]
     Active Substance: FENTANYL CITRATE
     Indication: BREAKTHROUGH PAIN
     Dosage: 200 UG, UNKNOWN
     Route: 002
     Dates: end: 20170807
  3. EFFENTORA [Suspect]
     Active Substance: FENTANYL CITRATE
     Indication: PRODUCT USED FOR UNKNOWN INDICATION
     Dosage: MORE OR EQUAL 50 MCG EVERY 3 DAYS
     Route: 065
     Dates: end: 201708
  4. EFFENTORA [Suspect]
     Active Substance: FENTANYL CITRATE
     Indication: BREAKTHROUGH PAIN
     Dosage: MORE OR EQUAL 50 MCG EVERY 3 DAYS
     Route: 065
     Dates: end: 201708
  5. EFFENTORA [Suspect]
     Active Substance: FENTANYL CITRATE
     Indication: BREAKTHROUGH PAIN
     Dosage: 400 UG, UP TO 6 TIMES/DAILY
     Route: 002
     Dates: start: 20170807
  6. EFFENTORA [Suspect]
     Active Substance: FENTANYL CITRATE
     Indication: CONSTIPATION
     Dosage: 200 UG, UNKNOWN
     Route: 002
     Dates: end: 20170816
  7. EFFENTORA [Suspect]
     Active Substance: FENTANYL CITRATE
     Indication: CONSTIPATION
     Dosage: 70 UG, EVERY 3 DAYS
     Route: 065
     Dates: start: 20170804
  8. EFFENTORA [Suspect]
     Active Substance: FENTANYL CITRATE
     Indication: PRODUCT USED FOR UNKNOWN INDICATION
     Dosage: 70 UG, EVERY 3 DAYS
     Route: 065
     Dates: start: 20170804
  9. EFFENTORA [Suspect]
     Active Substance: FENTANYL CITRATE
     Indication: BREAKTHROUGH PAIN
     Dosage: 70 UG, EVERY 3 DAYS
     Route: 065
     Dates: start: 20170804
  10. EFFENTORA [Suspect]
     Active Substance: FENTANYL CITRATE
     Indication: CONSTIPATION
     Dosage: 400 UG, UP TO 6 TIMES/DAILY
     Route: 002
     Dates: start: 20170807
  11. EFFENTORA [Suspect]
     Active Substance: FENTANYL CITRATE
     Indication: PRODUCT USED FOR UNKNOWN INDICATION
     Dosage: 400 UG, UP TO 6 TIMES/DAILY
     Route: 002
     Dates: start: 20170807
  12. EFFENTORA [Suspect]
     Active Substance: FENTANYL CITRATE
     Indication: PRODUCT USED FOR UNKNOWN INDICATION
     Dosage: 200 UG, UNKNOWN
     Route: 002
     Dates: end: 20170807
  13. EFFENTORA [Suspect]
     Active Substance: FENTANYL CITRATE
     Indication: PRODUCT USED FOR UNKNOWN INDICATION
     Dosage: 200 UG, UNKNOWN
     Route: 002
     Dates: end: 20170816
  14. EFFENTORA [Suspect]
     Active Substance: FENTANYL CITRATE
     Indication: CONSTIPATION
     Dosage: 200 UG, UNKNOWN
     Route: 002
     Dates: end: 20170807
  15. EFFENTORA [Suspect]
     Active Substance: FENTANYL CITRATE
     Indication: BREAKTHROUGH PAIN
     Dosage: 200 UG, UNKNOWN
     Route: 002
     Dates: end: 20170816
  16. EFFENTORA [Suspect]
     Active Substance: FENTANYL CITRATE
     Indication: CONSTIPATION
     Dosage: MORE OR EQUAL 50 MCG EVERY 3 DAYS
     Route: 065
     Dates: end: 201708
  17. RELISTOR [Concomitant]
     Active Substance: METHYLNALTREXONE BROMIDE
     Indication: CONSTIPATION
     Dates: start: 20170807, end: 20170816

REACTIONS (1)
  - Drug ineffective [Not Recovered/Not Resolved]

NARRATIVE: CASE EVENT DATE: 20170803
